FAERS Safety Report 6163186-7 (Version None)
Quarter: 2009Q2

REPORT INFORMATION
  Report Type: 
  Country: None (occurrence: None)
  Receive Date: 20090420
  Receipt Date: 20090420
  Transmission Date: 20091009
  Serious: Yes (Hospitalization)
  Sender: FDA-Public Use
  Company Number: None

PATIENT
  Age: 34 Year
  Sex: Male
  Weight: 58.51 kg

DRUGS (2)
  1. ATOVAQUONE [Suspect]
     Indication: UPPER RESPIRATORY TRACT INFECTION
     Dosage: 1 ML BID PO
     Route: 048
     Dates: start: 20090117, end: 20090216
  2. AZITHROMYCIN [Suspect]
     Indication: ANTIFUNGAL PROPHYLAXIS
     Dosage: 2 TAB QWEEK PO
     Route: 048
     Dates: start: 19980202

REACTIONS (4)
  - ABDOMINAL PAIN LOWER [None]
  - CONSTIPATION [None]
  - DIARRHOEA [None]
  - HAEMATOCHEZIA [None]
